FAERS Safety Report 9051103 (Version 1)
Quarter: 2013Q1

REPORT INFORMATION
  Report Type: Spontaneous
  Country: US (occurrence: US)
  Receive Date: 20130206
  Receipt Date: 20130206
  Transmission Date: 20140127
  Serious: Yes (Hospitalization)
  Sender: FDA-Public Use
  Company Number: US-SANOFI-AVENTIS-2013SA009553

PATIENT
  Sex: Male

DRUGS (2)
  1. ZOLPIDEM [Suspect]
     Route: 048
  2. ZOLPIDEM [Suspect]
     Route: 048

REACTIONS (2)
  - Hospitalisation [Unknown]
  - Feeling abnormal [Unknown]
